FAERS Safety Report 12901991 (Version 1)
Quarter: 2016Q4

REPORT INFORMATION
  Report Type: Report from Study
  Country: US (occurrence: US)
  Receive Date: 20161102
  Receipt Date: 20161102
  Transmission Date: 20170207
  Serious: Yes (Other)
  Sender: FDA-Public Use
  Company Number: US-CIPLA LTD.-2016LB20440

PATIENT

DRUGS (9)
  1. NEVIRAPINE. [Suspect]
     Active Substance: NEVIRAPINE
     Dosage: UNK
     Route: 065
  2. ZIDOVUDINE. [Suspect]
     Active Substance: ZIDOVUDINE
     Indication: HIV INFECTION
     Dosage: UNK
     Route: 065
  3. LAMIVUDINE. [Suspect]
     Active Substance: LAMIVUDINE
     Indication: HIV INFECTION
     Dosage: UNK
     Route: 065
  4. NEVIRAPINE. [Suspect]
     Active Substance: NEVIRAPINE
     Indication: PROPHYLAXIS AGAINST HIV INFECTION
     Dosage: UNK
     Route: 065
  5. DELAVIRIDINE [Suspect]
     Active Substance: DELAVIRDINE
     Dosage: UNK
     Route: 065
  6. EFAVIRENZ [Suspect]
     Active Substance: EFAVIRENZ
     Dosage: UNK
     Route: 065
  7. EMTRICITABINE [Suspect]
     Active Substance: EMTRICITABINE
     Dosage: UNK
     Route: 065
  8. ABACAVIR. [Suspect]
     Active Substance: ABACAVIR
     Dosage: UNK
     Route: 065
  9. DIDANOSINE. [Suspect]
     Active Substance: DIDANOSINE
     Route: 065

REACTIONS (3)
  - Virologic failure [Unknown]
  - Drug resistance [Unknown]
  - Foetal exposure during pregnancy [None]
